FAERS Safety Report 8268796-9 (Version None)
Quarter: 2012Q2

REPORT INFORMATION
  Report Type: 
  Country: None (occurrence: None)
  Receive Date: 20120409
  Receipt Date: 20120409
  Transmission Date: 20120825
  Serious: Yes (Other)
  Sender: FDA-Public Use
  Company Number: None

PATIENT
  Age: 37 Year
  Sex: Female
  Weight: 48.534 kg

DRUGS (1)
  1. NUVARING [Suspect]
     Indication: CONTRACEPTION
     Dosage: 0.015MG
     Route: 067
     Dates: start: 20120213, end: 20120402

REACTIONS (8)
  - FATIGUE [None]
  - MIDDLE INSOMNIA [None]
  - DEPRESSION [None]
  - DISTURBANCE IN ATTENTION [None]
  - IRRITABILITY [None]
  - IMPAIRED WORK ABILITY [None]
  - FEELINGS OF WORTHLESSNESS [None]
  - SUICIDAL IDEATION [None]
